FAERS Safety Report 10125414 (Version 2)
Quarter: 2014Q2

REPORT INFORMATION
  Report Type: Report from Study
  Country: FR (occurrence: FR)
  Receive Date: 20140425
  Receipt Date: 20140501
  Transmission Date: 20141212
  Serious: Yes (Hospitalization)
  Sender: FDA-Public Use
  Company Number: FR-PFIZER INC-2014113643

PATIENT
  Age: 2 Year
  Sex: Male
  Weight: 9.1 kg

DRUGS (3)
  1. SOMATROPIN [Suspect]
     Indication: SMALL FOR DATES BABY
     Dosage: 6 MG, WEEKLY
     Dates: start: 20080826
  2. SERETIDE [Concomitant]
     Indication: ASTHMA
     Dosage: UNK
     Route: 048
     Dates: start: 2006
  3. VENTOLINE [Concomitant]
     Indication: ASTHMA
     Dosage: UNK
     Route: 048
     Dates: start: 2006

REACTIONS (1)
  - Asthmatic crisis [Recovered/Resolved]
